FAERS Safety Report 4651208-1 (Version None)
Quarter: 2005Q2

REPORT INFORMATION
  Report Type: 
  Country: None (occurrence: None)
  Receive Date: 20050503
  Receipt Date: 20050428
  Transmission Date: 20051028
  Serious: Yes (Other)
  Sender: FDA-Public Use
  Company Number: PHNU2005DE01795

PATIENT
  Sex: Male

DRUGS (3)
  1. AREDIA [Suspect]
     Dosage: 90 MG, UNK
     Dates: start: 20011120, end: 20020805
  2. AREDIA [Suspect]
     Dates: start: 20050101
  3. ZOMETA [Suspect]
     Dosage: 4 MG, UNK
     Dates: start: 20020930, end: 20041201

REACTIONS (2)
  - ASEPTIC NECROSIS BONE [None]
  - DENTAL TREATMENT [None]
